FAERS Safety Report 5861533-4 (Version None)
Quarter: 2008Q3

REPORT INFORMATION
  Report Type: 
  Country: None (occurrence: None)
  Receive Date: 20080827
  Receipt Date: 20080506
  Transmission Date: 20090109
  Serious: No
  Sender: FDA-Public Use
  Company Number: US-ABBOTT-08P-163-0450517-00

PATIENT
  Sex: Male
  Weight: 113.63 kg

DRUGS (3)
  1. NIASPAN [Suspect]
     Indication: BLOOD CHOLESTEROL INCREASED
     Route: 048
     Dates: start: 20080501, end: 20080506
  2. INSULIN [Concomitant]
     Indication: DIABETES MELLITUS
     Route: 058
  3. HEART MEDICATIONS [Concomitant]
     Indication: CARDIAC DISORDER

REACTIONS (4)
  - ERYTHEMA [None]
  - FLUSHING [None]
  - PRURITUS [None]
  - RASH [None]
